FAERS Safety Report 10423179 (Version 4)
Quarter: 2017Q3

REPORT INFORMATION
  Report Type: Report from Study
  Country: US (occurrence: US)
  Receive Date: 20140902
  Receipt Date: 20170915
  Transmission Date: 20171127
  Serious: Yes (Hospitalization, Other)
  Sender: FDA-Public Use
  Company Number: PHEH2014US017116

PATIENT
  Age: 25 Year
  Sex: Male

DRUGS (2)
  1. TOBI [Suspect]
     Active Substance: TOBRAMYCIN
     Dosage: 300 MG, BID
     Route: 055
  2. TOBI [Suspect]
     Active Substance: TOBRAMYCIN
     Indication: PNEUMONIA BACTERIAL
     Dosage: 112 MG, BID (EVERY OTHER MONTH)
     Route: 055

REACTIONS (7)
  - Communication disorder [Unknown]
  - Lafora^s myoclonic epilepsy [Unknown]
  - Pneumonia pseudomonal [Unknown]
  - Mobility decreased [Unknown]
  - Product use in unapproved indication [Unknown]
  - Encephalopathy [Unknown]
  - Incorrect route of drug administration [Unknown]

NARRATIVE: CASE EVENT DATE: 20141014
